FAERS Safety Report 6067429-X (Version None)
Quarter: 2009Q1

REPORT INFORMATION
  Report Type: 
  Country: None (occurrence: None)
  Receive Date: 20090204
  Receipt Date: 20090204
  Transmission Date: 20090719
  Serious: No
  Sender: FDA-Public Use
  Company Number: None

PATIENT
  Sex: Female
  Weight: 79.55 kg

DRUGS (6)
  1. VERAPAMIL [Suspect]
     Dosage: 120MG TABLET SA 120 MG QD ORAL
     Route: 048
     Dates: start: 20080310, end: 20090203
  2. CAMILA [Concomitant]
  3. MOTRIN [Concomitant]
  4. NAPROSYN [Concomitant]
  5. NEXIUM [Concomitant]
  6. PROTOPIC [Concomitant]

REACTIONS (1)
  - ANXIETY [None]
